FAERS Safety Report 10182067 (Version 1)
Quarter: 2014Q2

REPORT INFORMATION
  Report Type: Report from Study
  Country: NL (occurrence: NL)
  Receive Date: 20140519
  Receipt Date: 20140519
  Transmission Date: 20141212
  Serious: Yes (Other)
  Sender: FDA-Public Use
  Company Number: NL-ROCHE-1402247

PATIENT
  Age: 40 Year
  Sex: Female
  Weight: 66 kg

DRUGS (1)
  1. VEMURAFENIB [Suspect]
     Indication: METASTATIC MALIGNANT MELANOMA
     Dosage: TWICE A DAY
     Route: 048

REACTIONS (1)
  - Inflammation [Recovered/Resolved]
